FAERS Safety Report 8595838-3 (Version None)
Quarter: 2012Q3

REPORT INFORMATION
  Report Type: 
  Country: None (occurrence: None)
  Receive Date: 20120815
  Receipt Date: 20120801
  Transmission Date: 20120928
  Serious: Yes (Hospitalization)
  Sender: FDA-Public Use
  Company Number: JP-ROCHE-1097828

PATIENT
  Age: 51 Year
  Sex: Female

DRUGS (1)
  1. ACTEMRA [Suspect]
     Indication: SYSTEMIC LUPUS ERYTHEMATOSUS
     Dosage: DOSAGE IS UNCERTAIN.
     Route: 041
     Dates: start: 20090101

REACTIONS (4)
  - PERITONITIS [None]
  - ACUTE ABDOMEN [None]
  - SMALL INTESTINAL PERFORATION [None]
  - PNEUMATOSIS INTESTINALIS [None]
